FAERS Safety Report 5287604-1 (Version None)
Quarter: 2007Q1

REPORT INFORMATION
  Report Type: 
  Country: None (occurrence: None)
  Receive Date: 20070124
  Receipt Date: 20060426
  Transmission Date: 20070707
  Serious: Yes (Other)
  Sender: FDA-Public Use
  Company Number: WAES 0604USA03947

PATIENT
  Age: 61 Year
  Sex: Female

DRUGS (6)
  1. INVANZ [Suspect]
     Indication: PNEUMONIA ASPIRATION
     Dosage: 1 MG/DAILY/IV
     Route: 042
     Dates: start: 20060101, end: 20060124
  2. AVELOX [Concomitant]
  3. LAMICTAL [Concomitant]
  4. ROCEPHIN [Concomitant]
  5. CLINDAMYCIN [Concomitant]
  6. VANCOMYCIN [Concomitant]

REACTIONS (1)
  - CONVULSION [None]
